FAERS Safety Report 10051493 (Version 1)
Quarter: 2014Q1

REPORT INFORMATION
  Report Type: Spontaneous
  Country: US (occurrence: None)
  Receive Date: 20140328
  Receipt Date: 20140328
  Transmission Date: 20141002
  Serious: Yes (Disabling, Other)
  Sender: FDA-Public Use
  Company Number: 2014-US-003338

PATIENT
  Age: 60 Year
  Sex: Female
  Weight: 41.3 kg

DRUGS (4)
  1. XYREM [Suspect]
     Indication: SLEEP DISORDER
     Route: 048
     Dates: start: 200505
  2. KLONOPIN (CLONAZEPAM) (TABLETS) [Concomitant]
  3. TRAZODONE (TRAZODONE HYDROCHLORIDE) [Concomitant]
  4. CELLCEPT (MYCOPHENOLATE MOFETIL) [Concomitant]

REACTIONS (12)
  - Temporomandibular joint syndrome [None]
  - Condition aggravated [None]
  - Weight decreased [None]
  - Illusion [None]
  - Daydreaming [None]
  - Insomnia [None]
  - Vitamin D deficiency [None]
  - Thinking abnormal [None]
  - Hallucination [None]
  - Therapeutic response decreased [None]
  - Decreased appetite [None]
  - Off label use [None]
